FAERS Safety Report 6332615-8 (Version None)
Quarter: 2009Q3

REPORT INFORMATION
  Report Type: 
  Country: None (occurrence: None)
  Receive Date: 20090828
  Receipt Date: 20090818
  Transmission Date: 20100115
  Serious: Yes (Disabling)
  Sender: FDA-Public Use
  Company Number: GB-ROCHE-651377

PATIENT
  Age: 63 Year
  Sex: Female

DRUGS (2)
  1. TAMIFLU [Suspect]
     Indication: DRUG USE FOR UNKNOWN INDICATION
     Route: 065
     Dates: start: 20090804, end: 20090808
  2. IBUPROFEN [Concomitant]

REACTIONS (9)
  - ABASIA [None]
  - BACK PAIN [None]
  - CONTUSION [None]
  - ERYTHEMA [None]
  - HALLUCINATION [None]
  - JOINT SWELLING [None]
  - NAUSEA [None]
  - PRURITUS [None]
  - VOMITING [None]
